FAERS Safety Report 21993938 (Version 1)
Quarter: 2023Q1

REPORT INFORMATION
  Report Type: Spontaneous
  Country: US (occurrence: None)
  Receive Date: 20230215
  Receipt Date: 20230215
  Transmission Date: 20230417
  Serious: No
  Sender: FDA-Public Use
  Company Number: 2023A037598

PATIENT
  Sex: Female
  Weight: 74.4 kg

DRUGS (8)
  1. OMEPRAZOLE [Suspect]
     Active Substance: OMEPRAZOLE
     Route: 048
  2. CRESTOR [Suspect]
     Active Substance: ROSUVASTATIN CALCIUM
     Dosage: TWICE A WEEK EVERY 4 DAYS
     Route: 048
  3. CRESTOR [Suspect]
     Active Substance: ROSUVASTATIN CALCIUM
     Dosage: TWICE A WEEK
     Route: 048
  4. COVID-19 VACCINE NOS [Suspect]
     Active Substance: COVID-19 VACCINE NOS
  5. INFLUENZA VIRUS VACCINE [Suspect]
     Active Substance: INFLUENZA VIRUS VACCINE
  6. PRAVASTATIN [Suspect]
     Active Substance: PRAVASTATIN
  7. UNSPECIFIED INGREDIENT [Suspect]
     Active Substance: UNSPECIFIED INGREDIENT
  8. AMPLODIPINE [Concomitant]

REACTIONS (5)
  - Oral pain [Unknown]
  - Feeling abnormal [Unknown]
  - Fibromyalgia [Unknown]
  - Product use issue [Unknown]
  - Drug ineffective [Unknown]
